FAERS Safety Report 9465300 (Version 1)
Quarter: 2013Q3

REPORT INFORMATION
  Report Type: Spontaneous
  Country: JP (occurrence: JP)
  Receive Date: 20130820
  Receipt Date: 20130820
  Transmission Date: 20140515
  Serious: Yes (Other)
  Sender: FDA-Public Use
  Company Number: JP-ABBOTT-13X-087-1133560-00

PATIENT
  Age: 61 Year
  Sex: Female

DRUGS (4)
  1. LANSAP 400 [Suspect]
     Indication: HELICOBACTER INFECTION
     Dosage: 1 CARD (0.5 CARD)
     Route: 048
     Dates: start: 20130726, end: 20130801
  2. LANSAP 400 [Suspect]
     Indication: HELICOBACTER INFECTION
     Dosage: 1 CARD (0.5 CARD)
     Route: 048
     Dates: start: 20130726, end: 20130801
  3. AMOXICILLIN [Suspect]
     Indication: HELICOBACTER INFECTION
     Dosage: 1 CARD (0.5 CARD)
     Route: 048
     Dates: start: 20130726, end: 20130801
  4. TAKEPRON [Suspect]
     Indication: PRODUCT USED FOR UNKNOWN INDICATION
     Route: 065
     Dates: end: 20130803

REACTIONS (3)
  - Oedema [Unknown]
  - Drug-induced liver injury [Not Recovered/Not Resolved]
  - Stevens-Johnson syndrome [Not Recovered/Not Resolved]
